FAERS Safety Report 21809609 (Version 1)
Quarter: 2023Q1

REPORT INFORMATION
  Report Type: Spontaneous
  Country: FR (occurrence: FR)
  Receive Date: 20230103
  Receipt Date: 20230103
  Transmission Date: 20230418
  Serious: No
  Sender: FDA-Public Use
  Company Number: FR-PADAGIS-2022PAD01184

PATIENT

DRUGS (2)
  1. CYCLOSPORINE [Suspect]
     Active Substance: CYCLOSPORINE
     Indication: Psoriasis
     Dosage: 4 MG/KG, QD
     Route: 065
  2. CALCIPOTRIENE AND BETAMETHASONE DIPROPIONATE [Concomitant]
     Active Substance: BETAMETHASONE DIPROPIONATE\CALCIPOTRIENE
     Indication: Psoriasis
     Dosage: UNK
     Route: 061

REACTIONS (2)
  - Treatment failure [Unknown]
  - Product use in unapproved indication [Unknown]
